FAERS Safety Report 4637845-9 (Version None)
Quarter: 2005Q2

REPORT INFORMATION
  Report Type: 
  Country: None (occurrence: None)
  Receive Date: 20050328
  Receipt Date: 20050204
  Transmission Date: 20051028
  Serious: No
  Sender: FDA-Public Use
  Company Number: USA050290057

PATIENT
  Age: 12 Year
  Sex: Male
  Weight: 36 kg

DRUGS (1)
  1. STRATTERA [Suspect]
     Indication: ATTENTION DEFICIT/HYPERACTIVITY DISORDER
     Dosage: 40 MG
     Dates: start: 20041212, end: 20050202

REACTIONS (8)
  - AGGRESSION [None]
  - DECREASED APPETITE [None]
  - DIZZINESS [None]
  - MASKED FACIES [None]
  - MOOD SWINGS [None]
  - NAUSEA [None]
  - PSYCHIATRIC SYMPTOM [None]
  - SOMNOLENCE [None]
